FAERS Safety Report 5197993-4 (Version None)
Quarter: 2007Q1

REPORT INFORMATION
  Report Type: 
  Country: None (occurrence: None)
  Receive Date: 20070104
  Receipt Date: 20061221
  Transmission Date: 20070707
  Serious: Yes (Hospitalization)
  Sender: FDA-Public Use
  Company Number: NO-BRISTOL-MYERS SQUIBB COMPANY-13621735

PATIENT
  Age: 77 Year
  Sex: Male

DRUGS (4)
  1. PRAVACHOL [Suspect]
  2. CIMETIDINE HCL [Suspect]
  3. TENORMIN [Concomitant]
     Indication: ANGINA PECTORIS
  4. ALBYL-E [Concomitant]
     Indication: CARDIOVASCULAR DISORDER

REACTIONS (6)
  - CONSTIPATION [None]
  - DIARRHOEA [None]
  - FATIGUE [None]
  - GENERAL PHYSICAL HEALTH DETERIORATION [None]
  - HEPATOTOXICITY [None]
  - WEIGHT DECREASED [None]
